FAERS Safety Report 6975652-2 (Version None)
Quarter: 2010Q3

REPORT INFORMATION
  Report Type: 
  Country: None (occurrence: None)
  Receive Date: 20100910
  Receipt Date: 20090325
  Transmission Date: 20110219
  Serious: No
  Sender: FDA-Public Use
  Company Number: US-WYE-H08712609

PATIENT
  Sex: Female
  Weight: 71.73 kg

DRUGS (6)
  1. PRISTIQ [Suspect]
     Indication: DEPRESSION
     Route: 048
     Dates: start: 20090313
  2. DESYREL [Concomitant]
  3. LIPITOR [Concomitant]
  4. PRILOSEC [Concomitant]
  5. FOSAMAX [Concomitant]
  6. WELLBUTRIN [Concomitant]

REACTIONS (3)
  - DYSPHAGIA [None]
  - HYPERSENSITIVITY [None]
  - PHARYNGEAL OEDEMA [None]
